FAERS Safety Report 19761759 (Version 1)
Quarter: 2021Q3

REPORT INFORMATION
  Report Type: Spontaneous
  Country: US (occurrence: US)
  Receive Date: 20210828
  Receipt Date: 20210828
  Transmission Date: 20211014
  Serious: No
  Sender: FDA-Public Use
  Company Number: None

PATIENT
  Age: 36 Year
  Sex: Female
  Weight: 99 kg

DRUGS (6)
  1. SILVER SULFADIAZINE. [Concomitant]
     Active Substance: SILVER SULFADIAZINE
  2. TRAMADOL. [Concomitant]
     Active Substance: TRAMADOL
  3. BACITRACIN. [Concomitant]
     Active Substance: BACITRACIN
  4. MULTIVITAMINS [Concomitant]
     Active Substance: VITAMINS
  5. BIOFREEZE [Suspect]
     Active Substance: MENTHOL
     Indication: MYALGIA
     Route: 061
     Dates: start: 20210705, end: 20210823
  6. FISH OIL [Concomitant]
     Active Substance: FISH OIL

REACTIONS (1)
  - Application site pain [None]

NARRATIVE: CASE EVENT DATE: 20210823
